FAERS Safety Report 5880956-0 (Version None)
Quarter: 2008Q3

REPORT INFORMATION
  Report Type: 
  Country: None (occurrence: None)
  Receive Date: 20080910
  Receipt Date: 20080825
  Transmission Date: 20090109
  Serious: Yes (Other)
  Sender: FDA-Public Use
  Company Number: SP-2006-002954

PATIENT
  Age: 68 Year
  Sex: Male

DRUGS (15)
  1. OLMETEC (OLMESARTAN MEDOXOMIL) (20 MILLIGRAM, TABLET) (OLMESARTAN MEDO [Suspect]
     Indication: HYPERTENSION
     Dosage: 20 MG (20 MG, 1 IN 1 D), PER ORAL
     Route: 048
     Dates: start: 20060224
  2. LANSOPRAZOLE [Concomitant]
  3. PREDNISONE [Concomitant]
  4. SERETIDE (FLUTICASONE) (INHALATION VAPOUR) [Concomitant]
  5. ACYCLOVIR [Concomitant]
  6. LACTULOSE [Concomitant]
  7. PRAVASTATIN [Concomitant]
  8. NASONEX [Concomitant]
  9. GAVISCON ADVANCE (POTASSIUM BICARBONATE, SODIUM ALGINATE) (10 MILLILIT [Concomitant]
  10. QUINAPRIL HCL [Concomitant]
  11. DIUREXAN (XIPAMIDE) [Concomitant]
  12. ELOCON [Concomitant]
  13. DAKTACORT (HYDROCORTISONE, MICONAZOLE NITRATE) [Concomitant]
  14. NULYTELY [Concomitant]
  15. SALMOL (SALBUTAMOL SULFATE) [Concomitant]

REACTIONS (2)
  - FLATULENCE [None]
  - MUSCULOSKELETAL STIFFNESS [None]
